FAERS Safety Report 5956845-X (Version None)
Quarter: 2008Q4

REPORT INFORMATION
  Report Type: 
  Country: None (occurrence: None)
  Receive Date: 20081118
  Receipt Date: 20081107
  Transmission Date: 20090506
  Serious: Yes (Other)
  Sender: FDA-Public Use
  Company Number: US-PFIZER INC-2008094816

PATIENT
  Sex: Female

DRUGS (2)
  1. CADUET [Suspect]
  2. BUPRENORPHINE HYDROCHLORIDE/NALOXONE HYDROCHLORIDE [Interacting]

REACTIONS (2)
  - DRUG INTERACTION [None]
  - HALLUCINATION [None]
